FAERS Safety Report 7483215-8 (Version None)
Quarter: 2011Q2

REPORT INFORMATION
  Report Type: 
  Country: None (occurrence: None)
  Receive Date: 20110516
  Receipt Date: 20100525
  Transmission Date: 20111010
  Serious: No
  Sender: FDA-Public Use
  Company Number: US-ALLERGAN-1006812US

PATIENT
  Age: 83 Year
  Sex: Male

DRUGS (4)
  1. ZYMAR [Suspect]
     Indication: CORNEAL TRANSPLANT
     Dosage: 1 GTT, QID
     Dates: start: 20100422
  2. VITAMIN B COMPLEX CAP [Concomitant]
  3. MULTIVITAMIN                       /00097801/ [Concomitant]
  4. SYNTHROID [Concomitant]
     Indication: HYPOTHYROIDISM

REACTIONS (3)
  - OEDEMA PERIPHERAL [None]
  - FATIGUE [None]
  - VERTIGO [None]
